FAERS Safety Report 4623020-0 (Version None)
Quarter: 2005Q1

REPORT INFORMATION
  Report Type: 
  Country: None (occurrence: None)
  Receive Date: 20050330
  Receipt Date: 20050322
  Transmission Date: 20050727
  Serious: Yes (Death, Hospitalization, Other)
  Sender: FDA-Public Use
  Company Number: PHBS2005JP04237

PATIENT
  Age: 23 Year
  Sex: Female

DRUGS (3)
  1. NEORAL [Suspect]
     Indication: LIVER TRANSPLANT
     Route: 048
     Dates: start: 20050203, end: 20050321
  2. PROGRAF [Suspect]
     Indication: LIVER TRANSPLANT
     Route: 042
     Dates: start: 20050124, end: 20050201
  3. PRODIF [Suspect]
     Route: 042
     Dates: start: 20050124, end: 20050201

REACTIONS (6)
  - DEATH [None]
  - GASTROINTESTINAL PERFORATION [None]
  - LIVER TRANSPLANT REJECTION [None]
  - RENAL IMPAIRMENT [None]
  - SURGERY [None]
  - THROMBOTIC THROMBOCYTOPENIC PURPURA [None]
